FAERS Safety Report 6158006-0 (Version None)
Quarter: 2009Q2

REPORT INFORMATION
  Report Type: 
  Country: None (occurrence: None)
  Receive Date: 20090414
  Receipt Date: 20090414
  Transmission Date: 20091009
  Serious: Yes (Hospitalization)
  Sender: FDA-Public Use
  Company Number: None

PATIENT
  Sex: Female
  Weight: 68.7 kg

DRUGS (2)
  1. TEMOZOLOMIDE [Suspect]
     Dosage: 3780 MG
  2. ACCUTANE [Suspect]
     Dosage: 2940 MG

REACTIONS (5)
  - CONVULSION [None]
  - HAEMORRHAGE [None]
  - NERVOUS SYSTEM DISORDER [None]
  - PLATELET COUNT DECREASED [None]
  - SOMNOLENCE [None]
